FAERS Safety Report 21932289 (Version 2)
Quarter: 2023Q1

REPORT INFORMATION
  Report Type: Spontaneous
  Country: US (occurrence: US)
  Receive Date: 20230131
  Receipt Date: 20230310
  Transmission Date: 20230418
  Serious: No
  Sender: FDA-Public Use
  Company Number: US-PFIZER INC-PV202300017301

PATIENT
  Age: 37 Year
  Sex: Female

DRUGS (1)
  1. XELJANZ [Suspect]
     Active Substance: TOFACITINIB CITRATE
     Dosage: UNK

REACTIONS (7)
  - Gastrooesophageal reflux disease [Unknown]
  - White blood cell count increased [Unknown]
  - Diarrhoea [Unknown]
  - Sinusitis [Unknown]
  - Influenza [Unknown]
  - Duodenogastric reflux [Unknown]
  - Nausea [Unknown]
